FAERS Safety Report 4891124-3 (Version None)
Quarter: 2006Q1

REPORT INFORMATION
  Report Type: 
  Country: None (occurrence: None)
  Receive Date: 20060125
  Receipt Date: 20051005
  Transmission Date: 20060701
  Serious: Yes (Death, Other)
  Sender: FDA-Public Use
  Company Number: US-MERCK-0510USA04732

PATIENT
  Age: 67 Year
  Sex: Male
  Weight: 89 kg

DRUGS (10)
  1. VIOXX [Suspect]
     Route: 048
     Dates: start: 20020703, end: 20040424
  2. AVAPRO [Concomitant]
     Route: 065
  3. AMBIEN [Concomitant]
     Route: 065
  4. VIAGRA [Concomitant]
     Route: 065
  5. PROTONIX [Concomitant]
     Route: 065
  6. [THERAPY UNSPECIFIED] [Concomitant]
     Route: 065
  7. LIPITOR [Concomitant]
     Route: 065
  8. VERAPAMIL MSD LP [Concomitant]
     Route: 065
  9. AVALIDE [Concomitant]
     Route: 065
  10. COUMADIN [Concomitant]
     Route: 065

REACTIONS (2)
  - DEATH [None]
  - MYOCARDIAL INFARCTION [None]
